FAERS Safety Report 7669814-9 (Version None)
Quarter: 2011Q3

REPORT INFORMATION
  Report Type: 
  Country: None (occurrence: None)
  Receive Date: 20110808
  Receipt Date: 20110804
  Transmission Date: 20111222
  Serious: Yes (Hospitalization)
  Sender: FDA-Public Use
  Company Number: FR-ABBOTT-11P-056-0844144-00

PATIENT
  Sex: Male

DRUGS (5)
  1. ABACAVIR [Suspect]
     Indication: HIV INFECTION
     Dates: end: 20110318
  2. KALETRA [Suspect]
     Indication: HIV INFECTION
     Dates: end: 20110318
  3. ARIPIPRAZOLE [Suspect]
     Indication: PSYCHOTIC DISORDER
     Dates: end: 20110318
  4. ZIDOVUDINE [Suspect]
     Indication: HIV INFECTION
     Dates: end: 20110318
  5. UNSPECIFIED BENZODIAZEPINES [Concomitant]
     Indication: PSYCHOTIC DISORDER
     Dates: end: 20110318

REACTIONS (1)
  - RHABDOMYOLYSIS [None]
